FAERS Safety Report 10160344 (Version 1)
Quarter: 2014Q2

REPORT INFORMATION
  Report Type: Spontaneous
  Country: US (occurrence: US)
  Receive Date: 20140508
  Receipt Date: 20140508
  Transmission Date: 20141212
  Serious: Yes (Other)
  Sender: FDA-Public Use
  Company Number: US-GLAXOSMITHKLINE-A1072373A

PATIENT
  Sex: Female

DRUGS (5)
  1. PROMACTA [Suspect]
     Indication: PRODUCT USED FOR UNKNOWN INDICATION
  2. SODIUM CHLORIDE [Concomitant]
  3. CORTEF [Concomitant]
  4. TYLENOL [Concomitant]
  5. BENADRYL [Concomitant]

REACTIONS (2)
  - Transfusion [Unknown]
  - Platelet transfusion [Unknown]
